FAERS Safety Report 5114746-3 (Version None)
Quarter: 2006Q3

REPORT INFORMATION
  Report Type: 
  Country: None (occurrence: None)
  Receive Date: 20060926
  Receipt Date: 20060919
  Transmission Date: 20061208
  Serious: Yes (Hospitalization)
  Sender: FDA-Public Use
  Company Number: BR-ROCHE-463948

PATIENT
  Age: 5 Year
  Sex: Male
  Weight: 25 kg

DRUGS (1)
  1. RIVOTRIL [Suspect]
     Indication: DRUG USE FOR UNKNOWN INDICATION
     Route: 048
     Dates: start: 20060917, end: 20060917

REACTIONS (5)
  - ACCIDENTAL EXPOSURE [None]
  - AGITATION [None]
  - ASTHENIA [None]
  - DELIRIUM [None]
  - SOMNOLENCE [None]
